FAERS Safety Report 16775659 (Version 5)
Quarter: 2024Q2

REPORT INFORMATION
  Report Type: Spontaneous
  Country: JP (occurrence: JP)
  Receive Date: 20190905
  Receipt Date: 20240522
  Transmission Date: 20240715
  Serious: Yes (Death, Hospitalization, Other)
  Sender: FDA-Public Use
  Company Number: JP-BRISTOL-MYERS SQUIBB COMPANY-BMS-2019-086161

PATIENT
  Age: 72 Year
  Sex: Female
  Weight: 35 kg

DRUGS (5)
  1. NIVOLUMAB [Suspect]
     Active Substance: NIVOLUMAB
     Indication: Gastric cancer recurrent
     Dosage: 240 MG, Q2W
     Route: 041
     Dates: start: 20190731, end: 20190814
  2. DIMETHICONE [Concomitant]
     Active Substance: DIMETHICONE
     Indication: Decreased appetite
     Dosage: 2 ML, Q8H
     Route: 048
     Dates: start: 20190807, end: 20190825
  3. VONOPRAZAN FUMARATE [Concomitant]
     Active Substance: VONOPRAZAN FUMARATE
     Indication: Decreased appetite
     Dosage: 10 MG, EVERYDAY
     Route: 048
     Dates: start: 20190605, end: 20190825
  4. METOCLOPRAMIDE [Concomitant]
     Active Substance: METOCLOPRAMIDE
     Indication: Decreased appetite
     Dosage: 15 MG, EVERYDAY
     Route: 048
     Dates: start: 20190626, end: 20190825
  5. METOCLOPRAMIDE HYDROCHLORIDE [Concomitant]
     Active Substance: METOCLOPRAMIDE HYDROCHLORIDE
     Indication: Decreased appetite
     Dosage: 15 MILLIGRAM, EVERYDAY
     Route: 048
     Dates: start: 20190626

REACTIONS (3)
  - Decreased appetite [Not Recovered/Not Resolved]
  - Ascites [Unknown]
  - Malignant neoplasm progression [Fatal]

NARRATIVE: CASE EVENT DATE: 20190826
